FAERS Safety Report 8214489-3 (Version None)
Quarter: 2012Q1

REPORT INFORMATION
  Report Type: 
  Country: None (occurrence: None)
  Receive Date: 20120316
  Receipt Date: 20120316
  Transmission Date: 20120608
  Serious: Yes (Death, Other)
  Sender: FDA-Public Use
  Company Number: None

PATIENT
  Age: 18 Year
  Sex: Female
  Weight: 51.709 kg

DRUGS (1)
  1. YAZ [Suspect]

REACTIONS (2)
  - FALL [None]
  - PULMONARY EMBOLISM [None]
